FAERS Safety Report 4695137-6 (Version None)
Quarter: 2005Q2

REPORT INFORMATION
  Report Type: 
  Country: None (occurrence: None)
  Receive Date: 20050617
  Receipt Date: 20050602
  Transmission Date: 20051028
  Serious: Yes (Hospitalization)
  Sender: FDA-Public Use
  Company Number: IMP_0868_2005

PATIENT
  Age: 35 Year
  Sex: Female

DRUGS (2)
  1. TERBUTALINE [Suspect]
     Indication: ANEURYSM
     Dosage: DF
  2. DEXAMETHASONE [Suspect]
     Indication: ANEURYSM
     Dosage: DF

REACTIONS (3)
  - DRUG EXPOSURE DURING PREGNANCY [None]
  - HEART RATE DECREASED [None]
  - HEART SOUNDS ABNORMAL [None]
